FAERS Safety Report 9053386 (Version 1)
Quarter: 2013Q1

REPORT INFORMATION
  Report Type: Spontaneous
  Country: US (occurrence: US)
  Receive Date: 20130208
  Receipt Date: 20130208
  Transmission Date: 20140127
  Serious: No
  Sender: FDA-Public Use
  Company Number: US-MYLANLABS-2012S1023513

PATIENT
  Sex: Male
  Weight: 80 kg

DRUGS (9)
  1. MORPHINE SULFATE EXTENDED-RELEASE TABLETS ` [Suspect]
     Indication: BACK PAIN
     Route: 048
  2. MORPHINE SULFATE EXTENDED-RELEASE TABLETS ` [Suspect]
     Indication: SURGERY
     Route: 048
  3. MORPHINE SULFATE EXTENDED-RELEASE TABLETS ` [Suspect]
     Indication: BACK PAIN
     Route: 048
  4. MORPHINE SULFATE EXTENDED-RELEASE TABLETS ` [Suspect]
     Indication: SURGERY
     Route: 048
  5. MAGNESIUM OXIDE [Concomitant]
  6. CITALOPRAM [Concomitant]
     Indication: MOOD DISORDER DUE TO A GENERAL MEDICAL CONDITION
  7. DIAZEPAM [Concomitant]
     Indication: MUSCLE SPASMS
  8. CARBAMAZEPINE [Concomitant]
  9. LOPERAMIDE [Concomitant]

REACTIONS (9)
  - Drug ineffective [Not Recovered/Not Resolved]
  - Back pain [Not Recovered/Not Resolved]
  - Unevaluable event [Not Recovered/Not Resolved]
  - Headache [Not Recovered/Not Resolved]
  - Arthralgia [Not Recovered/Not Resolved]
  - Muscle spasms [Not Recovered/Not Resolved]
  - Abdominal discomfort [Not Recovered/Not Resolved]
  - Dysgeusia [Not Recovered/Not Resolved]
  - Diarrhoea [Not Recovered/Not Resolved]
